FAERS Safety Report 26208221 (Version 1)
Quarter: 2025Q4

REPORT INFORMATION
  Report Type: Spontaneous
  Country: US (occurrence: US)
  Receive Date: 20251229
  Receipt Date: 20251229
  Transmission Date: 20260117
  Serious: No
  Sender: MYLAN
  Company Number: US-MYLANLABS-2025M1107746

PATIENT

DRUGS (2)
  1. DILANTIN [Suspect]
     Active Substance: PHENYTOIN
     Indication: Seizure
     Dosage: UNK, TID (THREE TIMES A DAY)
     Dates: start: 2025
  2. DILANTIN [Suspect]
     Active Substance: PHENYTOIN
     Dosage: UNK, QID (FOUR TIMES A DAY)
     Dates: start: 202511

REACTIONS (4)
  - Drug level decreased [Unknown]
  - Hypersomnia [Recovering/Resolving]
  - Vertigo [Recovered/Resolved]
  - Drug ineffective [Recovered/Resolved]

NARRATIVE: CASE EVENT DATE: 20251001
